FAERS Safety Report 8961926 (Version 1)
Quarter: 2012Q4

REPORT INFORMATION
  Report Type: 
  Country: DE (occurrence: DE)
  Receive Date: 20121213
  Receipt Date: 20121213
  Transmission Date: 20130627
  Serious: Yes (Hospitalization)
  Sender: FDA-Public Use
  Company Number: DE-BIOGENIDEC-2012BI048125

PATIENT
  Age: 42 Year
  Sex: Male
  Weight: 97 kg

DRUGS (1)
  1. AVONEX [Suspect]
     Indication: MULTIPLE SCLEROSIS
     Route: 030
     Dates: start: 201203

REACTIONS (3)
  - Vision blurred [Not Recovered/Not Resolved]
  - Feeling hot [Not Recovered/Not Resolved]
  - Nasopharyngitis [Not Recovered/Not Resolved]
